FAERS Safety Report 4861590-8 (Version None)
Quarter: 2005Q4

REPORT INFORMATION
  Report Type: 
  Country: None (occurrence: None)
  Receive Date: 20051220
  Receipt Date: 20051121
  Transmission Date: 20060501
  Serious: Yes (Life-Threatening)
  Sender: FDA-Public Use
  Company Number: BW-BOEHRINGER INGELHEIM PHARMACEUTICALS, INC.-2005-DE-05521GD

PATIENT

DRUGS (6)
  1. NEVIRAPINE [Suspect]
     Indication: PROPHYLAXIS
     Route: 063
  2. NEVIRAPINE [Suspect]
     Indication: HUMAN IMMUNODEFICIENCY VIRUS TRANSMISSION
  3. ZIDOVUDINE [Suspect]
     Indication: PROPHYLAXIS
     Route: 063
  4. ZIDOVUDINE [Suspect]
     Indication: HUMAN IMMUNODEFICIENCY VIRUS TRANSMISSION
     Dosage: 12 MG/KG (MOTHERS' BREAST MILK COLLECTION AT 2 MONTHS), 18 MG/KG (MOTHERS' BREAST MILK COLLECTION AT
  5. LAMIVUDINE [Suspect]
     Indication: PROPHYLAXIS
     Route: 063
  6. LAMIVUDINE [Suspect]
     Indication: HUMAN IMMUNODEFICIENCY VIRUS TRANSMISSION

REACTIONS (4)
  - DRUG EXPOSURE DURING PREGNANCY [None]
  - DRUG EXPOSURE VIA BREAST MILK [None]
  - HAEMATOTOXICITY [None]
  - NEUTROPENIA [None]
